FAERS Safety Report 9579647 (Version 1)
Quarter: 2013Q4

REPORT INFORMATION
  Report Type: Spontaneous
  Country: US (occurrence: US)
  Receive Date: 20131002
  Receipt Date: 20131002
  Transmission Date: 20140711
  Serious: Yes (Hospitalization)
  Sender: FDA-Public Use
  Company Number: US-009507513-1309USA013805

PATIENT
  Sex: 0

DRUGS (1)
  1. INVANZ [Suspect]
     Indication: INFECTION
     Dosage: AV 1 GRAM OF RECONSTITUTED AND DILUTED INVANZ ADMINISTERED ONCE DAILY
     Route: 042

REACTIONS (1)
  - Hallucination [Recovered/Resolved]
